FAERS Safety Report 9409002 (Version 1)
Quarter: 2013Q3

REPORT INFORMATION
  Report Type: Spontaneous
  Country: JP (occurrence: JP)
  Receive Date: 20130719
  Receipt Date: 20130719
  Transmission Date: 20140515
  Serious: Yes (Hospitalization, Other)
  Sender: FDA-Public Use
  Company Number: JP-ROCHE-1067950

PATIENT
  Sex: Female

DRUGS (2)
  1. ACTEMRA [Suspect]
     Indication: SYSTEMIC LUPUS ERYTHEMATOSUS
     Dosage: DOSAGE IS UNCERTAIN.
     Route: 041
     Dates: start: 20090118
  2. ACTEMRA [Suspect]
     Indication: OFF LABEL USE

REACTIONS (5)
  - Acute abdomen [Unknown]
  - Pneumatosis intestinalis [Unknown]
  - Small intestinal perforation [Unknown]
  - Peritonitis [Unknown]
  - Diverticulitis [Not Recovered/Not Resolved]
